FAERS Safety Report 9784464 (Version 2)
Quarter: 2014Q1

REPORT INFORMATION
  Report Type: Spontaneous
  Country: US (occurrence: IR)
  Receive Date: 20131226
  Receipt Date: 20140116
  Transmission Date: 20141002
  Serious: Yes (Death, Other)
  Sender: FDA-Public Use
  Company Number: US-BAXTER-2013BAX050918

PATIENT
  Sex: Female

DRUGS (1)
  1. ENDOXAN 500MG VIAL [Suspect]
     Indication: NEOPLASM MALIGNANT

REACTIONS (2)
  - Infection [Fatal]
  - Poor quality drug administered [Unknown]
